FAERS Safety Report 19996385 (Version 1)
Quarter: 2021Q4

REPORT INFORMATION
  Report Type: Spontaneous
  Country: US (occurrence: US)
  Receive Date: 20211026
  Receipt Date: 20211026
  Transmission Date: 20220303
  Serious: Yes (Hospitalization)
  Sender: FDA-Public Use
  Company Number: None

PATIENT
  Sex: Female

DRUGS (6)
  1. HUMIRA [Suspect]
     Active Substance: ADALIMUMAB
     Indication: Rheumatoid arthritis
     Dosage: OTHER FREQUENCY:Q2WKS;
     Route: 058
     Dates: start: 20210312
  2. FOLIC ACID [Concomitant]
     Active Substance: FOLIC ACID
  3. METHOTREXATE [Concomitant]
     Active Substance: METHOTREXATE
  4. OMEPRAZOLE [Concomitant]
     Active Substance: OMEPRAZOLE
  5. VITAMIN D [Concomitant]
     Active Substance: VITAMIN D NOS
  6. OLANZAPINE [Concomitant]
     Active Substance: OLANZAPINE

REACTIONS (8)
  - Rheumatoid arthritis [None]
  - COVID-19 [None]
  - Obstruction gastric [None]
  - Cholecystectomy [None]
  - Incisional hernia [None]
  - Weight decreased [None]
  - Underweight [None]
  - Therapy interrupted [None]
